FAERS Safety Report 15336482 (Version 2)
Quarter: 2023Q2

REPORT INFORMATION
  Report Type: Spontaneous
  Country: FR (occurrence: FR)
  Receive Date: 20180830
  Receipt Date: 20230410
  Transmission Date: 20230721
  Serious: Yes (Life-Threatening)
  Sender: FDA-Public Use
  Company Number: None

PATIENT
  Age: 31 Year
  Sex: Female
  Weight: 61 kg

DRUGS (13)
  1. ONDANSETRON [Suspect]
     Active Substance: ONDANSETRON
     Indication: Prophylaxis of nausea and vomiting
     Dosage: 4 MG, 1 TOTAL
     Route: 041
     Dates: start: 20180710, end: 20180710
  2. CEFUROXIME [Suspect]
     Active Substance: CEFUROXIME
     Indication: Antibiotic prophylaxis
     Dosage: 1.5 G, 1 TOTAL
     Route: 041
     Dates: start: 20180710, end: 20180710
  3. SYNTOCINON [Suspect]
     Active Substance: OXYTOCIN
     Indication: Caesarean section
     Dosage: UNK
     Route: 041
  4. PHENYLEPHRINE [Suspect]
     Active Substance: PHENYLEPHRINE HYDROCHLORIDE
     Indication: Hypotension
     Dosage: 400 UG, 1 TOTAL
     Route: 041
     Dates: start: 20180710, end: 20180710
  5. PROPOFOL [Suspect]
     Active Substance: PROPOFOL
     Indication: Anaesthesia
     Dosage: 120 MG, UNK
     Route: 041
     Dates: start: 20180710, end: 20180710
  6. SUFENTANIL [Suspect]
     Active Substance: SUFENTANIL
     Indication: Spinal anaesthesia
     Dosage: 35 UG, 1 TOTAL
     Route: 037
     Dates: start: 20180710, end: 20180710
  7. MORPHINE [Suspect]
     Active Substance: MORPHINE
     Indication: Spinal anaesthesia
     Dosage: 100 UG, 1 TOTAL
     Route: 037
     Dates: start: 20180710, end: 20180710
  8. TRANEXAMIC ACID [Suspect]
     Active Substance: TRANEXAMIC ACID
     Indication: Peripartum haemorrhage
     Dosage: 1 G, TOTAL
     Route: 041
     Dates: start: 20180710, end: 20180710
  9. SUCCINYLCHOLINE [Suspect]
     Active Substance: SUCCINYLCHOLINE
     Indication: Anaesthesia
     Dosage: 60 MG, 1 TOTAL
     Route: 041
     Dates: start: 20180710, end: 20180710
  10. BUPIVACAINE [Suspect]
     Active Substance: BUPIVACAINE
     Indication: Spinal anaesthesia
     Dosage: 7 MG, 1 TOTAL
     Route: 037
     Dates: start: 20180710, end: 20180710
  11. NOREPINEPHRINE [Suspect]
     Active Substance: NOREPINEPHRINE
     Indication: Haemodynamic instability
     Dosage: 1 G/KG, 1 MINUTE
     Route: 041
     Dates: start: 20180710, end: 20180710
  12. SULPROSTONE [Suspect]
     Active Substance: SULPROSTONE
     Indication: Peripartum haemorrhage
     Dosage: 1 ?G/L, 1 TOTAL
     Route: 041
     Dates: start: 20180710, end: 20180710
  13. CLOTTAFACT [Suspect]
     Active Substance: FIBRINOGEN HUMAN
     Indication: Peripartum haemorrhage
     Dosage: 3 G, 1 TOTAL
     Route: 041
     Dates: start: 20180710, end: 20180710

REACTIONS (1)
  - Cardio-respiratory arrest [Recovered/Resolved]

NARRATIVE: CASE EVENT DATE: 20180710
